FAERS Safety Report 8349100-4 (Version None)
Quarter: 2012Q2

REPORT INFORMATION
  Report Type: 
  Country: None (occurrence: None)
  Receive Date: 20120508
  Receipt Date: 20120424
  Transmission Date: 20120825
  Serious: Yes (Hospitalization)
  Sender: FDA-Public Use
  Company Number: 2012TP000110

PATIENT
  Age: 48 Year
  Sex: Female

DRUGS (6)
  1. ATROPA BELLADONNA EXTRACT [Concomitant]
  2. LIDOCAINE [Suspect]
     Indication: PROCEDURAL PAIN
     Dosage: 3 PATCH;1X;TOP
     Route: 061
     Dates: start: 20120315, end: 20120322
  3. HOMEOPATIC PREPARATION [Concomitant]
  4. AMITRIPTYLINE HCL [Concomitant]
  5. PRILOSEC [Concomitant]
  6. LAMALINE /00764901/ [Concomitant]

REACTIONS (2)
  - BRONCHOSPASM [None]
  - ASTHMA [None]
